FAERS Safety Report 13800140 (Version 2)
Quarter: 2017Q4

REPORT INFORMATION
  Report Type: Spontaneous
  Country: US (occurrence: US)
  Receive Date: 20170727
  Receipt Date: 20171006
  Transmission Date: 20180320
  Serious: No
  Sender: FDA-Public Use
  Company Number: US-JNJFOC-20170621065

PATIENT
  Age: 55 Year
  Sex: Female
  Weight: 65.77 kg

DRUGS (4)
  1. WOMENS ROGAINE UNSCENTED [Suspect]
     Active Substance: MINOXIDIL
     Indication: ALOPECIA AREATA
     Dosage: I DONT USE THAT MUCH
     Route: 061
     Dates: start: 20170605, end: 20170619
  2. PRAVASTATIN. [Concomitant]
     Active Substance: PRAVASTATIN
     Indication: BLOOD CHOLESTEROL INCREASED
     Dosage: (TAKE IT ON MONDAY WENSDAY ANDFRIDAY), 1.5 YEARS??STARTED 5 YEAR AGO, 1 EVERY OTHER DAY
     Route: 065
  3. WOMENS ROGAINE UNSCENTED [Suspect]
     Active Substance: MINOXIDIL
     Indication: ALOPECIA
     Dosage: I DONT USE THAT MUCH
     Route: 061
     Dates: start: 20170605, end: 20170619
  4. FISH OIL [Concomitant]
     Active Substance: FISH OIL
     Indication: ROUTINE HEALTH MAINTENANCE
     Dosage: 6MONTHS
     Route: 065

REACTIONS (5)
  - Dizziness [Recovered/Resolved]
  - Off label use [Unknown]
  - Wrong technique in product usage process [Recovered/Resolved]
  - Incorrect dose administered [Recovered/Resolved]
  - Product use in unapproved indication [Unknown]

NARRATIVE: CASE EVENT DATE: 20170605
